FAERS Safety Report 5586863-5 (Version None)
Quarter: 2008Q1

REPORT INFORMATION
  Report Type: 
  Country: None (occurrence: None)
  Receive Date: 20080110
  Receipt Date: 20071024
  Transmission Date: 20080703
  Serious: No
  Sender: FDA-Public Use
  Company Number: US-BRISTOL-MYERS SQUIBB COMPANY-13958640

PATIENT
  Age: 65 Year
  Sex: Male

DRUGS (3)
  1. CETUXIMAB [Suspect]
     Indication: NEOPLASM MALIGNANT
     Dates: start: 20071012, end: 20071014
  2. CDDP [Suspect]
     Indication: NEOPLASM MALIGNANT
     Dates: start: 20071012, end: 20071014
  3. RADIATION THERAPY [Suspect]
     Dates: start: 20071012, end: 20071014

REACTIONS (2)
  - CONJUNCTIVITIS [None]
  - DERMATITIS ACNEIFORM [None]
